FAERS Safety Report 25222115 (Version 1)
Quarter: 2025Q2

REPORT INFORMATION
  Report Type: Spontaneous
  Country: US (occurrence: US)
  Receive Date: 20250421
  Receipt Date: 20250421
  Transmission Date: 20250717
  Serious: Yes (Other)
  Sender: PFIZER
  Company Number: US-PFIZER INC-202500082783

PATIENT

DRUGS (1)
  1. CIBINQO [Suspect]
     Active Substance: ABROCITINIB

REACTIONS (6)
  - Glaucoma [Unknown]
  - Optic nerve disorder [Unknown]
  - Eye disorder [Unknown]
  - Visual impairment [Unknown]
  - Intraocular pressure increased [Unknown]
  - Facial discomfort [Unknown]
